FAERS Safety Report 6113036-X (Version None)
Quarter: 2009Q1

REPORT INFORMATION
  Report Type: 
  Country: None (occurrence: None)
  Receive Date: 20090312
  Receipt Date: 20090306
  Transmission Date: 20090719
  Serious: Yes (Other)
  Sender: FDA-Public Use
  Company Number: B0564634A

PATIENT
  Age: 51 Year

DRUGS (4)
  1. LAMBIPOL [Suspect]
     Indication: DRUG USE FOR UNKNOWN INDICATION
     Dosage: 200MG PER DAY
     Route: 065
  2. PAROXETINE HCL [Concomitant]
     Dosage: 30MG PER DAY
  3. XANAX [Concomitant]
     Dosage: .5MG PER DAY
  4. XANAX [Concomitant]
     Dosage: 1MG PER DAY

REACTIONS (3)
  - CLONUS [None]
  - GAIT DISTURBANCE [None]
  - MYOCLONIC EPILEPSY [None]
